FAERS Safety Report 24930182 (Version 1)
Quarter: 2025Q1

REPORT INFORMATION
  Report Type: Spontaneous
  Country: US (occurrence: US)
  Receive Date: 20250205
  Receipt Date: 20250205
  Transmission Date: 20250409
  Serious: Yes (Other)
  Sender: VIRTUS PHARMACEUTICALS
  Company Number: US-VIRTUS PHARMACEUTICALS, LLC-2024VTS00027

PATIENT
  Age: 80 Year
  Sex: Female

DRUGS (6)
  1. LEVORPHANOL TARTRATE [Suspect]
     Active Substance: LEVORPHANOL TARTRATE
     Indication: Cancer pain
     Dosage: 1 TABLET (2 MG), 3X/DAY
     Dates: start: 20240911, end: 2024
  2. LEVORPHANOL TARTRATE [Suspect]
     Active Substance: LEVORPHANOL TARTRATE
     Indication: Complex regional pain syndrome
  3. LEVORPHANOL TARTRATE [Suspect]
     Active Substance: LEVORPHANOL TARTRATE
     Indication: Cervical radiculopathy
  4. FENTANYL [Suspect]
     Active Substance: FENTANYL
  5. TIZANIDINE [Concomitant]
     Active Substance: TIZANIDINE
  6. CLONIDINE [Concomitant]
     Active Substance: CLONIDINE

REACTIONS (1)
  - Renal impairment [Unknown]

NARRATIVE: CASE EVENT DATE: 20240901
